FAERS Safety Report 12118640 (Version 1)
Quarter: 2016Q1

REPORT INFORMATION
  Report Type: Spontaneous
  Country: JP (occurrence: JP)
  Receive Date: 20160226
  Receipt Date: 20160226
  Transmission Date: 20160526
  Serious: Yes (Other)
  Sender: FDA-Public Use
  Company Number: JP-SUN PHARMACEUTICAL INDUSTRIES LTD-2016R1-112064

PATIENT
  Age: 62 Year
  Sex: Female

DRUGS (2)
  1. CARBOPLATIN. [Suspect]
     Active Substance: CARBOPLATIN
     Indication: PELVIC NEOPLASM
     Dosage: 450 MG/BODY/COURSE EVERY 4-8 WEEKS
     Route: 013
  2. CISPLATIN. [Suspect]
     Active Substance: CISPLATIN
     Indication: PELVIC NEOPLASM
     Dosage: 100 MG, 1/WEEK
     Route: 013

REACTIONS (6)
  - Haematochezia [Recovered/Resolved]
  - Neutropenia [Unknown]
  - Vomiting [Unknown]
  - Femoral neck fracture [Recovered/Resolved]
  - Thrombocytopenia [Unknown]
  - Constipation [Unknown]
